FAERS Safety Report 8651960 (Version 3)
Quarter: 2013Q2

REPORT INFORMATION
  Report Type: Report from Study
  Country: JP (occurrence: JP)
  Receive Date: 20120706
  Receipt Date: 20130507
  Transmission Date: 20140414
  Serious: Yes (Other)
  Sender: FDA-Public Use
  Company Number: JP-JNJFOC-20120700200

PATIENT
  Age: 75 Year
  Sex: Male
  Weight: 67 kg

DRUGS (10)
  1. SIMPONI [Suspect]
     Indication: RHEUMATOID ARTHRITIS
     Route: 058
     Dates: start: 20120410
  2. SIMPONI [Suspect]
     Indication: RHEUMATOID ARTHRITIS
     Route: 058
     Dates: start: 20120313
  3. SIMPONI [Suspect]
     Indication: RHEUMATOID ARTHRITIS
     Route: 058
     Dates: start: 20120117
  4. SIMPONI [Suspect]
     Indication: RHEUMATOID ARTHRITIS
     Route: 058
     Dates: start: 20111122
  5. SIMPONI [Suspect]
     Indication: RHEUMATOID ARTHRITIS
     Route: 058
     Dates: start: 20120214
  6. METHOTREXATE [Concomitant]
     Indication: RHEUMATOID ARTHRITIS
     Route: 065
  7. FOLIC ACID [Concomitant]
     Indication: PROPHYLAXIS
     Route: 065
  8. METHYCOBAL [Concomitant]
     Route: 065
  9. NORVASC [Concomitant]
     Indication: HYPERTENSION
     Route: 048
  10. CALCIUM POLYSTYRENE SULFONATE [Concomitant]
     Indication: RENAL IMPAIRMENT

REACTIONS (2)
  - Lung neoplasm malignant [Unknown]
  - Cell marker increased [Unknown]
